FAERS Safety Report 9845059 (Version 5)
Quarter: 2014Q2

REPORT INFORMATION
  Report Type: Spontaneous
  Country: US (occurrence: None)
  Receive Date: 20140122
  Receipt Date: 20140429
  Transmission Date: 20141212
  Serious: Yes (Hospitalization, Other)
  Sender: FDA-Public Use
  Company Number: AUR-APL-2014-00396

PATIENT
  Age: 55 Year
  Sex: Female
  Weight: 93.88 kg

DRUGS (8)
  1. METOPROLOL [Suspect]
     Indication: HYPERTENSION
  2. LYRICA [Suspect]
     Indication: FIBROMYALGIA
     Dosage: 200 MG (100 MG, 2 IN 1 D)
     Route: 048
     Dates: start: 2009, end: 201311
  3. ACCURETIC [Suspect]
     Indication: HYPERTENSION
  4. JANUMET [Suspect]
     Indication: DIABETES MELLITUS
  5. MOTRIN [Suspect]
     Indication: PAIN
     Route: 048
     Dates: start: 201312
  6. CRESTOR (ROSUVASTATIN CALCIUM) [Concomitant]
  7. AMITRIPTYLINE (AMITRIPTYLINE) [Concomitant]
  8. CYMBALTA [Concomitant]

REACTIONS (10)
  - Influenza [None]
  - Blood glucose increased [None]
  - Blood pressure increased [None]
  - Pain [None]
  - Drug ineffective [None]
  - Irritability [None]
  - Frustration [None]
  - Activities of daily living impaired [None]
  - Dyspnoea [None]
  - Feeling abnormal [None]
